FAERS Safety Report 24873015 (Version 1)
Quarter: 2025Q1

REPORT INFORMATION
  Report Type: Spontaneous
  Country: JP (occurrence: JP)
  Receive Date: 20250122
  Receipt Date: 20250122
  Transmission Date: 20250409
  Serious: Yes (Other)
  Sender: BRISTOL-MYERS SQUIBB COMPANY
  Company Number: JP-BRISTOL-MYERS SQUIBB COMPANY-2025-006362

PATIENT
  Age: 53 Year
  Sex: Male

DRUGS (1)
  1. SPRYCEL [Suspect]
     Active Substance: DASATINIB
     Indication: Chronic myeloid leukaemia

REACTIONS (4)
  - Severe invasive streptococcal infection [Recovered/Resolved]
  - Pleural effusion [Unknown]
  - Disseminated intravascular coagulation [Recovered/Resolved]
  - Organ failure [Recovered/Resolved]

NARRATIVE: CASE EVENT DATE: 20210701
